FAERS Safety Report 8515618-4 (Version None)
Quarter: 2012Q3

REPORT INFORMATION
  Report Type: 
  Country: None (occurrence: None)
  Receive Date: 20120717
  Receipt Date: 20120712
  Transmission Date: 20120928
  Serious: Yes (Disabling)
  Sender: FDA-Public Use
  Company Number: PHEH2012US012276

PATIENT
  Sex: Male

DRUGS (2)
  1. GILENYA [Suspect]
     Indication: MULTIPLE SCLEROSIS
     Dosage: 0.5 MG, QD
     Route: 048
     Dates: start: 20111116
  2. LEVOXYL [Concomitant]
     Dosage: UNK UKN, UNK

REACTIONS (7)
  - ANXIETY [None]
  - LYMPHOCYTE COUNT DECREASED [None]
  - NERVOUSNESS [None]
  - DEPRESSED MOOD [None]
  - WHITE BLOOD CELL COUNT DECREASED [None]
  - PANIC ATTACK [None]
  - FEELING JITTERY [None]
